FAERS Safety Report 15122233 (Version 1)
Quarter: 2018Q3

REPORT INFORMATION
  Report Type: Spontaneous
  Country: GB (occurrence: GB)
  Receive Date: 20180709
  Receipt Date: 20180709
  Transmission Date: 20181010
  Serious: Yes (Hospitalization)
  Sender: FDA-Public Use
  Company Number: GB-MYLANLABS-2018M1047738

PATIENT
  Age: 92 Year
  Sex: Female
  Weight: 65 kg

DRUGS (1)
  1. ANASTROZOLE. [Suspect]
     Active Substance: ANASTROZOLE
     Indication: BREAST CANCER
     Dosage: 1 MG, QD
     Route: 048

REACTIONS (4)
  - Blood folate decreased [Unknown]
  - Femur fracture [Unknown]
  - Hypothyroidism [Unknown]
  - Vitamin D decreased [Unknown]
